FAERS Safety Report 8517871-X (Version None)
Quarter: 2012Q3

REPORT INFORMATION
  Report Type: 
  Country: None (occurrence: None)
  Receive Date: 20120718
  Receipt Date: 20110729
  Transmission Date: 20120928
  Serious: No
  Sender: FDA-Public Use
  Company Number: US-BRISTOL-MYERS SQUIBB COMPANY-15854367

PATIENT
  Sex: Male

DRUGS (10)
  1. ENALAPRIL MALEATE [Concomitant]
  2. COUMADIN [Suspect]
     Dates: start: 20070101
  3. METOPROLOL SUCCINATE [Concomitant]
  4. FOLIC ACID [Concomitant]
  5. LEVOXYL [Concomitant]
  6. CALCITRIOL [Concomitant]
  7. PROTONIX [Concomitant]
  8. FUROSEMIDE [Concomitant]
  9. PRAVASTATIN [Concomitant]
  10. IRON [Concomitant]

REACTIONS (1)
  - INTERNATIONAL NORMALISED RATIO INCREASED [None]
